FAERS Safety Report 19887209 (Version 1)
Quarter: 2021Q3

REPORT INFORMATION
  Report Type: Spontaneous
  Country: DK (occurrence: DK)
  Receive Date: 20210928
  Receipt Date: 20210928
  Transmission Date: 20211014
  Serious: Yes (Hospitalization)
  Sender: FDA-Public Use
  Company Number: DK-BIOGEN-2021BI01052285

PATIENT
  Age: 37 Year
  Sex: Female
  Weight: 61 kg

DRUGS (20)
  1. AVONEX [Suspect]
     Active Substance: INTERFERON BETA-1A
  2. AVONEX [Suspect]
     Active Substance: INTERFERON BETA-1A
  3. AVONEX [Suspect]
     Active Substance: INTERFERON BETA-1A
  4. AVONEX [Suspect]
     Active Substance: INTERFERON BETA-1A
  5. PANODIL [Concomitant]
     Active Substance: ACETAMINOPHEN
     Indication: PAIN
     Dosage: STRENGTH: 500 MG
     Route: 048
     Dates: start: 20200902
  6. MOVICOL [Concomitant]
     Active Substance: POLYETHYLENE GLYCOL 3350\POTASSIUM CHLORIDE\SODIUM BICARBONATE\SODIUM CHLORIDE
     Indication: CONSTIPATION
     Route: 048
     Dates: start: 20190520
  7. AVONEX [Suspect]
     Active Substance: INTERFERON BETA-1A
     Indication: MULTIPLE SCLEROSIS
     Dosage: STRENGTH: 30 MICROGRAM /0.5 ML
     Route: 030
     Dates: start: 20201006, end: 20210210
  8. AVONEX [Suspect]
     Active Substance: INTERFERON BETA-1A
  9. BETMIGA [Concomitant]
     Active Substance: MIRABEGRON
     Indication: INCONTINENCE
     Dosage: STRENGTH: 50 MG
     Route: 048
     Dates: start: 20170815
  10. COLECALCIFEROL [Concomitant]
     Active Substance: CHOLECALCIFEROL
     Indication: VITAMIN D DEFICIENCY
     Dosage: STRENGTH: 35 MICORGRAM
     Route: 048
     Dates: start: 20190520
  11. AVONEX [Suspect]
     Active Substance: INTERFERON BETA-1A
  12. COMIRNATY [Suspect]
     Active Substance: TOZINAMERAN
     Indication: COVID-19 IMMUNISATION
     Route: 030
     Dates: start: 20210723, end: 20210817
  13. BAKLOFEN ^2CARE4^ [Concomitant]
     Indication: MUSCLE SPASMS
     Dosage: STRENGTH: 10 MG
     Route: 048
     Dates: start: 20201006
  14. AVONEX [Suspect]
     Active Substance: INTERFERON BETA-1A
  15. AVONEX [Suspect]
     Active Substance: INTERFERON BETA-1A
  16. AVONEX [Suspect]
     Active Substance: INTERFERON BETA-1A
  17. AVONEX [Suspect]
     Active Substance: INTERFERON BETA-1A
  18. AVONEX [Suspect]
     Active Substance: INTERFERON BETA-1A
  19. AVONEX [Suspect]
     Active Substance: INTERFERON BETA-1A
  20. DITEKIBOOSTER [Suspect]
     Active Substance: DIPHTHERIA AND TETANUS TOXOIDS AND ACELLULAR PERTUSSIS VACCINE ADSORBED
     Indication: IMMUNISATION
     Route: 065
     Dates: start: 20210809, end: 20210809

REACTIONS (2)
  - Maternal exposure during pregnancy [Recovered/Resolved]
  - Foetal death [Not Recovered/Not Resolved]

NARRATIVE: CASE EVENT DATE: 20210820
